FAERS Safety Report 19495452 (Version 2)
Quarter: 2022Q3

REPORT INFORMATION
  Report Type: Spontaneous
  Country: US (occurrence: US)
  Receive Date: 20210706
  Receipt Date: 20220922
  Transmission Date: 20221026
  Serious: Yes (Other)
  Sender: FDA-Public Use
  Company Number: US-SA-SAC20210702001023

PATIENT
  Age: 62 Year
  Sex: Female

DRUGS (2)
  1. ZANTAC [Suspect]
     Active Substance: RANITIDINE HYDROCHLORIDE
     Indication: Dyspepsia
     Dosage: UNKNOWN AT THIS TIME, QD
     Dates: start: 200601, end: 201901
  2. ZANTAC [Suspect]
     Active Substance: RANITIDINE HYDROCHLORIDE
     Indication: Gastrooesophageal reflux disease

REACTIONS (1)
  - Breast cancer female [Unknown]

NARRATIVE: CASE EVENT DATE: 20111011
